FAERS Safety Report 17999719 (Version 1)
Quarter: 2020Q3

REPORT INFORMATION
  Report Type: Spontaneous
  Country: DE (occurrence: DE)
  Receive Date: 20200709
  Receipt Date: 20200709
  Transmission Date: 20201103
  Serious: Yes (Other)
  Sender: FDA-Public Use
  Company Number: DE-DRREDDYS-GER/GER/20/0124733

PATIENT
  Age: 1 Day
  Sex: Male
  Weight: 2.85 kg

DRUGS (3)
  1. SOBELIN [Concomitant]
     Active Substance: CLINDAMYCIN HYDROCHLORIDE
     Indication: PRODUCT USED FOR UNKNOWN INDICATION
     Dosage: FROM GW 16 5/7 TO 17 5/7 AND AGAIN FROM GW 22 5/7 UNTIL 23 5/7.
     Route: 064
     Dates: start: 20190618, end: 20190806
  2. LEVETIRACETAM. [Suspect]
     Active Substance: LEVETIRACETAM
     Indication: PRODUCT USED FOR UNKNOWN INDICATION
     Dosage: 500 [MG/D (2X250) ] 2 SEPARATED DOSES
     Route: 064
     Dates: start: 20190221, end: 20191205
  3. L?THYROXIN [Concomitant]
     Active Substance: LEVOTHYROXINE SODIUM
     Indication: PRODUCT USED FOR UNKNOWN INDICATION
     Dosage: 75 [MICROGRAM/D ]
     Route: 064
     Dates: start: 20190221, end: 20191205

REACTIONS (2)
  - Small for dates baby [Unknown]
  - Foetal exposure during pregnancy [Unknown]

NARRATIVE: CASE EVENT DATE: 20191205
